FAERS Safety Report 25886880 (Version 1)
Quarter: 2025Q4

REPORT INFORMATION
  Report Type: Spontaneous
  Country: CA (occurrence: CA)
  Receive Date: 20251006
  Receipt Date: 20251006
  Transmission Date: 20260117
  Serious: Yes (Life-Threatening)
  Sender: GRIFOLS
  Company Number: CA-IGSA-BIG0038467

PATIENT
  Age: 83 Year
  Sex: Male
  Weight: 71 kg

DRUGS (5)
  1. GAMUNEX [Suspect]
     Active Substance: HUMAN IMMUNOGLOBULIN G
     Indication: Muscular weakness
     Dosage: 2.5 GRAM, TOTAL
     Route: 042
     Dates: start: 20250920, end: 20250920
  2. GAMUNEX [Suspect]
     Active Substance: HUMAN IMMUNOGLOBULIN G
     Indication: Off label use
     Dosage: 5 GRAM, TOTAL
     Dates: start: 20250920, end: 20250920
  3. GAMUNEX [Suspect]
     Active Substance: HUMAN IMMUNOGLOBULIN G
     Dosage: 40 GRAM, TOTAL
     Route: 042
     Dates: start: 20250920, end: 20250920
  4. IGIVNEX [Suspect]
     Active Substance: HUMAN IMMUNOGLOBULIN G
     Indication: Muscular weakness
     Dosage: 20 GRAM, TOTAL
     Route: 042
     Dates: start: 20250920, end: 20250920
  5. IGIVNEX [Suspect]
     Active Substance: HUMAN IMMUNOGLOBULIN G
     Indication: Off label use

REACTIONS (2)
  - Transfusion-associated dyspnoea [Not Recovered/Not Resolved]
  - Hypoxia [Not Recovered/Not Resolved]

NARRATIVE: CASE EVENT DATE: 20250921
